FAERS Safety Report 13457328 (Version 1)
Quarter: 2017Q2

REPORT INFORMATION
  Report Type: Spontaneous
  Country: US (occurrence: US)
  Receive Date: 20170418
  Receipt Date: 20170418
  Transmission Date: 20170830
  Serious: Yes (Hospitalization)
  Sender: FDA-Public Use
  Company Number: None

PATIENT
  Age: 64 Year
  Sex: Female
  Weight: 78.2 kg

DRUGS (1)
  1. CEFEPIME [Suspect]
     Active Substance: CEFEPIME HYDROCHLORIDE
     Indication: FEBRILE NEUTROPENIA
     Dosage: ?          OTHER FREQUENCY:Q8H;?
     Route: 041
     Dates: start: 20170212, end: 20170214

REACTIONS (2)
  - Febrile neutropenia [None]
  - Rash [None]

NARRATIVE: CASE EVENT DATE: 20170212
